FAERS Safety Report 7640296-6 (Version None)
Quarter: 2011Q3

REPORT INFORMATION
  Report Type: 
  Country: None (occurrence: None)
  Receive Date: 20110728
  Receipt Date: 20110721
  Transmission Date: 20111222
  Serious: Yes (Hospitalization, Other)
  Sender: FDA-Public Use
  Company Number: US-BAYER-2010-003076

PATIENT
  Age: 43 Year
  Sex: Female
  Weight: 130 kg

DRUGS (11)
  1. VERAPAMIL [Concomitant]
     Dosage: 240 MG, UNK
  2. SYNTHROID [Concomitant]
     Dosage: 0.125 MG, UNK
  3. CEFUROMXIME [Concomitant]
     Dosage: 250 MG, UNK
  4. NAPROXEN [Concomitant]
  5. FLONASE [Concomitant]
     Dosage: 0.050 MG, UNK
  6. CARVEDILOL [Concomitant]
  7. YAZ [Suspect]
     Indication: MENSTRUAL DISORDER
     Dosage: UNK
     Dates: start: 20071108, end: 20071221
  8. TRIAMTERENE [Concomitant]
  9. YAZ [Suspect]
     Indication: ORAL CONTRACEPTION
     Dosage: UNK
     Dates: start: 20060901, end: 20061001
  10. ALLEGRA [Concomitant]
     Dosage: 180 MG, UNK
  11. CIPROFLOXACIN [Concomitant]
     Dosage: 500 MG, UNK

REACTIONS (2)
  - PULMONARY EMBOLISM [None]
  - PAIN [None]
